FAERS Safety Report 23351040 (Version 1)
Quarter: 2023Q4

REPORT INFORMATION
  Report Type: Spontaneous
  Country: US (occurrence: US)
  Receive Date: 20231229
  Receipt Date: 20231229
  Transmission Date: 20240109
  Serious: No
  Sender: FDA-Public Use
  Company Number: US-ABBVIE-5564378

PATIENT
  Age: 32 Year
  Sex: Male

DRUGS (4)
  1. BOTOX COSMETIC [Suspect]
     Active Substance: ONABOTULINUMTOXINA
     Indication: Skin wrinkling
     Dosage: TIME INTERVAL: AS NECESSARY: 15 UNITS
     Route: 065
     Dates: start: 202102, end: 202102
  2. BOTOX COSMETIC [Suspect]
     Active Substance: ONABOTULINUMTOXINA
     Indication: Skin wrinkling
     Dosage: TIME INTERVAL: AS NECESSARY: 20 UNITS
     Route: 065
     Dates: start: 202102, end: 202102
  3. BOTOX COSMETIC [Suspect]
     Active Substance: ONABOTULINUMTOXINA
     Indication: Skin wrinkling
     Dosage: TIME INTERVAL: AS NECESSARY: 20 UNITS
     Route: 065
     Dates: start: 20231227, end: 20231227
  4. BOTOX COSMETIC [Suspect]
     Active Substance: ONABOTULINUMTOXINA
     Indication: Skin wrinkling
     Dosage: TIME INTERVAL: AS NECESSARY: 20 UNITS
     Route: 065
     Dates: start: 20231227, end: 20231227

REACTIONS (1)
  - Product preparation error [Not Recovered/Not Resolved]

NARRATIVE: CASE EVENT DATE: 20231227
